FAERS Safety Report 19988640 (Version 1)
Quarter: 2021Q4

REPORT INFORMATION
  Report Type: Spontaneous
  Country: US (occurrence: US)
  Receive Date: 20211024
  Receipt Date: 20211024
  Transmission Date: 20220303
  Serious: No
  Sender: FDA-Public Use
  Company Number: US-JNJFOC-20211030902

PATIENT
  Sex: Male

DRUGS (2)
  1. TREMFYA [Suspect]
     Active Substance: GUSELKUMAB
     Indication: Psoriasis
     Route: 065
  2. COVID-19 VACCINE [Concomitant]
     Indication: COVID-19 prophylaxis
     Route: 065

REACTIONS (2)
  - Inappropriate schedule of product administration [Unknown]
  - Psoriasis [Unknown]
